FAERS Safety Report 22379854 (Version 2)
Quarter: 2023Q2

REPORT INFORMATION
  Report Type: Spontaneous
  Country: GB (occurrence: GB)
  Receive Date: 20230529
  Receipt Date: 20230614
  Transmission Date: 20230721
  Serious: Yes (Hospitalization)
  Sender: FDA-Public Use
  Company Number: GB-BRISTOL-MYERS SQUIBB COMPANY-2023-074616

PATIENT
  Age: 9 Decade
  Sex: Male

DRUGS (3)
  1. ELIQUIS [Suspect]
     Active Substance: APIXABAN
     Indication: Deep vein thrombosis
     Dosage: DOSE : 2.5MG;     FREQ : TWICE DAILY
  2. CLOPIDOGREL [Concomitant]
     Active Substance: CLOPIDOGREL BISULFATE
     Indication: Arterial thrombosis
  3. CLOPIDOGREL [Concomitant]
     Active Substance: CLOPIDOGREL BISULFATE
     Indication: Cerebrovascular accident

REACTIONS (6)
  - Fall [Unknown]
  - Anaemia [Unknown]
  - Subcutaneous haematoma [Unknown]
  - Prothrombin time ratio increased [Unknown]
  - Activated partial thromboplastin time prolonged [Unknown]
  - Muscle haemorrhage [Recovered/Resolved]
